FAERS Safety Report 4353604-9 (Version None)
Quarter: 2004Q2

REPORT INFORMATION
  Report Type: 
  Country: None (occurrence: None)
  Receive Date: 20040430
  Receipt Date: 20040416
  Transmission Date: 20050107
  Serious: Yes (Hospitalization)
  Sender: FDA-Public Use
  Company Number: 206119

PATIENT
  Age: 57 Year
  Sex: Male

DRUGS (15)
  1. HERCEPTIN [Suspect]
     Indication: GASTRIC CANCER
     Dosage: SEE IMAGE, INTRAVENOUS
     Route: 042
     Dates: start: 20040225, end: 20040225
  2. HERCEPTIN [Suspect]
     Indication: GASTRIC CANCER
     Dosage: SEE IMAGE, INTRAVENOUS
     Route: 042
     Dates: start: 20040303
  3. BUPRENORPHINE (BUPRENORPHINE HYDROCHLORIDE) [Concomitant]
  4. DIPYRONE INJ [Concomitant]
  5. LEVOTHYROXINE SODIUM [Concomitant]
  6. METOCLOPRAMIDE HYDROCHLORIDE [Concomitant]
  7. OMEPRAZOLE [Concomitant]
  8. PANTOZOL (PANTOPRAZOLE) [Concomitant]
  9. KALITRANS (POTASSIUM BICARBONATE) [Concomitant]
  10. AVELOX [Concomitant]
  11. DULCOLAX [Concomitant]
  12. CLEXANE (ENOXAPARIN SODIUM) [Concomitant]
  13. UNAT (TORSEMIDE) [Concomitant]
  14. FERROUS GLYCINE SULFATE (FERROUS GLYCINE SULFATE) [Concomitant]
  15. LAXOBERAL (SODIUM PICOSULFATE) [Concomitant]

REACTIONS (6)
  - ABDOMINAL PAIN [None]
  - ASTHENIA [None]
  - DYSPNOEA [None]
  - GASTROINTESTINAL HAEMORRHAGE [None]
  - HAEMOGLOBIN DECREASED [None]
  - MULTI-ORGAN FAILURE [None]
